FAERS Safety Report 4786020-6 (Version None)
Quarter: 2005Q3

REPORT INFORMATION
  Report Type: 
  Country: None (occurrence: None)
  Receive Date: 20050930
  Receipt Date: 20050921
  Transmission Date: 20060218
  Serious: Yes (Hospitalization)
  Sender: FDA-Public Use
  Company Number: 2005-09-0004

PATIENT
  Age: 75 Year
  Sex: Male
  Weight: 58 kg

DRUGS (2)
  1. PEG-INTRON [Suspect]
     Indication: HEPATITIS C
     Dosage: 50 MCG QW, SUBCUTANEOUS
     Route: 058
     Dates: start: 20050813, end: 20050820
  2. REBETOL [Suspect]
     Indication: HEPATITIS C
     Dosage: 200 MG, ORAL
     Route: 048
     Dates: start: 20050813, end: 20050826

REACTIONS (2)
  - ARRHYTHMIA [None]
  - ATRIOVENTRICULAR BLOCK COMPLETE [None]
